FAERS Safety Report 8911635 (Version 1)
Quarter: 2012Q4

REPORT INFORMATION
  Report Type: 
  Country: CA (occurrence: CA)
  Receive Date: 20121116
  Receipt Date: 20121116
  Transmission Date: 20130627
  Serious: Yes (Other)
  Sender: FDA-Public Use
  Company Number: CA-PFIZER INC-2012286753

PATIENT
  Age: 3 None
  Sex: Female

DRUGS (2)
  1. PRISTIQ [Suspect]
     Dosage: 100mg daily
     Dates: start: 201209
  2. CLONAZEPAM [Concomitant]
     Dosage: UNK

REACTIONS (2)
  - Convulsion [Unknown]
  - Toxicity to various agents [Unknown]
